FAERS Safety Report 9522583 (Version 2)
Quarter: 2014Q1

REPORT INFORMATION
  Report Type: Spontaneous
  Country: US (occurrence: None)
  Receive Date: 20130305
  Receipt Date: 20140306
  Transmission Date: 20141002
  Serious: Yes (Hospitalization, Other)
  Sender: FDA-Public Use
  Company Number: 163-21880-12033289

PATIENT
  Age: 71 Year
  Sex: Female
  Weight: 78.02 kg

DRUGS (14)
  1. REVLIMID [Suspect]
     Indication: PLASMA CELL MYELOMA
     Dosage: 15 MG, 1 IN 1 D, PO
     Route: 048
     Dates: start: 201102
  2. DECADRON (DEXAMETHASONE) [Suspect]
     Indication: PLASMA CELL MYELOMA
     Dosage: UNK?
     Dates: start: 201102
  3. ZOLINZA (VORINOSTAT) [Suspect]
     Indication: PLASMA CELL MYELOMA
     Dosage: UNK
     Dates: start: 201108
  4. ASA (ACETYLSALICYLIC ACID) (TABLETS) [Concomitant]
  5. CENTRUM SILVERE (CENTRUM SILVER) (TABLETS) [Concomitant]
  6. VITAMIN B COMPLEX (B-KOMPLEX ^LECIVA^) [Concomitant]
  7. LEVOXYL (LEVOTHYROXINE SODIUM) [Concomitant]
  8. POTASSIUM (POSTASSIUM) [Concomitant]
  9. TARKA (UDRAMIL) [Concomitant]
  10. ZANTAC (RANITIDINE HYDROCHLORIDE) [Concomitant]
  11. UROCIT-K (POTASSIUM CITRATE) [Concomitant]
  12. CALCIUM +D (OS -CAL) [Concomitant]
  13. ZOMETA (ZOLEDRONIC ACID) [Concomitant]
  14. COMPLEX B-50 (BECOSYN FORTE) [Concomitant]

REACTIONS (3)
  - Pulmonary embolism [None]
  - Deep vein thrombosis [None]
  - Neuropathy peripheral [None]
